FAERS Safety Report 9137363 (Version 1)
Quarter: 2013Q1

REPORT INFORMATION
  Report Type: Spontaneous
  Country: US (occurrence: US)
  Receive Date: 20130219
  Receipt Date: 20130219
  Transmission Date: 20140127
  Serious: No
  Sender: FDA-Public Use
  Company Number: US-BRISTOL-MYERS SQUIBB COMPANY-16507469

PATIENT
  Age: 47 Year
  Sex: Female
  Weight: 95.24 kg

DRUGS (7)
  1. ABATACEPT SUBQ INJECTION 125MG/ML [Suspect]
     Dosage: LAST TREATMENT WAS ON 02APRIL2012
  2. PREMARIN [Concomitant]
  3. FOLIC ACID [Concomitant]
  4. METHOTREXATE [Concomitant]
  5. DEXLANSOPRAZOLE [Concomitant]
  6. PREDNISONE [Concomitant]
  7. MOBIC [Concomitant]

REACTIONS (1)
  - Hyperhidrosis [Not Recovered/Not Resolved]
